FAERS Safety Report 7570080-3 (Version None)
Quarter: 2011Q2

REPORT INFORMATION
  Report Type: 
  Country: None (occurrence: None)
  Receive Date: 20110622
  Receipt Date: 20110622
  Transmission Date: 20111010
  Serious: Yes (Other)
  Sender: FDA-Public Use
  Company Number: None

PATIENT
  Sex: Male
  Weight: 113.3993 kg

DRUGS (1)
  1. FINASTERIDE [Suspect]
     Indication: PROSTATIC DISORDER
     Dosage: 5MG 1 DAILY

REACTIONS (3)
  - GYNAECOMASTIA [None]
  - ERECTILE DYSFUNCTION [None]
  - BURNING SENSATION [None]
